FAERS Safety Report 20644252 (Version 2)
Quarter: 2022Q3

REPORT INFORMATION
  Report Type: Report from Study
  Country: MX (occurrence: MX)
  Receive Date: 20220328
  Receipt Date: 20220708
  Transmission Date: 20221026
  Serious: Yes (Other)
  Sender: FDA-Public Use
  Company Number: MX-NOVARTISPH-NVSC2022MX069307

PATIENT
  Sex: Female

DRUGS (1)
  1. TASIGNA [Suspect]
     Active Substance: NILOTINIB
     Indication: Chronic myeloid leukaemia
     Dosage: UNK
     Route: 048

REACTIONS (12)
  - Haemorrhage [Unknown]
  - Pericardial effusion [Unknown]
  - Haemoglobin decreased [Recovering/Resolving]
  - Infection [Unknown]
  - Pleural effusion [Unknown]
  - Spinal disorder [Unknown]
  - Blood glucose decreased [Unknown]
  - Nausea [Unknown]
  - Fatigue [Unknown]
  - Pain in extremity [Unknown]
  - Gastrooesophageal reflux disease [Unknown]
  - Pain [Unknown]
